FAERS Safety Report 7166247-9 (Version None)
Quarter: 2010Q4

REPORT INFORMATION
  Report Type: 
  Country: None (occurrence: None)
  Receive Date: 20101216
  Receipt Date: 20101206
  Transmission Date: 20110411
  Serious: Yes (Hospitalization)
  Sender: FDA-Public Use
  Company Number: CA-JNJFOC-20101107431

PATIENT
  Sex: Female
  Weight: 149.9 kg

DRUGS (4)
  1. REMICADE [Suspect]
     Indication: PSORIASIS
     Route: 042
  2. REMICADE [Suspect]
     Route: 042
  3. ARISTOCORT TOPICAL [Concomitant]
     Indication: PSORIASIS
  4. COUMADIN [Concomitant]

REACTIONS (2)
  - PERICARDITIS [None]
  - PULMONARY EMBOLISM [None]
